FAERS Safety Report 10529903 (Version 1)
Quarter: 2014Q4

REPORT INFORMATION
  Report Type: Spontaneous
  Country: US (occurrence: None)
  Receive Date: 20141017
  Receipt Date: 20141017
  Transmission Date: 20150528
  Serious: Yes (Hospitalization)
  Sender: FDA-Public Use
  Company Number: 201410062

PATIENT
  Age: 64 Year
  Sex: Male

DRUGS (2)
  1. TESTIM [Suspect]
     Active Substance: TESTOSTERONE
     Indication: BLOOD TESTOSTERONE DECREASED
     Route: 062
     Dates: start: 201201, end: 201302
  2. TESTIM [Suspect]
     Active Substance: TESTOSTERONE
     Indication: HYPOGONADISM
     Route: 062
     Dates: start: 201201, end: 201302

REACTIONS (8)
  - Feeling abnormal [None]
  - Lacunar infarction [None]
  - Anhedonia [None]
  - Aphasia [None]
  - Cerebrovascular accident [None]
  - Fear [None]
  - Frustration [None]
  - Economic problem [None]

NARRATIVE: CASE EVENT DATE: 20121010
